FAERS Safety Report 5136868-3 (Version None)
Quarter: 2006Q4

REPORT INFORMATION
  Report Type: 
  Country: None (occurrence: None)
  Receive Date: 20061023
  Receipt Date: 20061005
  Transmission Date: 20070319
  Serious: Yes (Other)
  Sender: FDA-Public Use
  Company Number: 8019454

PATIENT
  Sex: Female
  Weight: 2.9 kg

DRUGS (4)
  1. KEPPRA [Suspect]
     Dosage: 1000 MG/D TRP
     Dates: start: 20050708, end: 20060424
  2. LAMICTAL [Suspect]
     Dosage: 600 MG/D TRP
     Dates: start: 20050708, end: 20060424
  3. SPECIAFOLDINE [Concomitant]
  4. SPECIAFOLDINE [Concomitant]

REACTIONS (2)
  - DRUG EXPOSURE DURING PREGNANCY [None]
  - FOETAL GROWTH RETARDATION [None]
